FAERS Safety Report 4418242-8 (Version None)
Quarter: 2004Q3

REPORT INFORMATION
  Report Type: 
  Country: None (occurrence: None)
  Receive Date: 20040809
  Receipt Date: 20040113
  Transmission Date: 20050211
  Serious: No
  Sender: FDA-Public Use
  Company Number: US-GLAXOSMITHKLINE-A0493498A

PATIENT
  Sex: Female

DRUGS (1)
  1. PAXIL CR [Suspect]
     Indication: ILL-DEFINED DISORDER
     Route: 048

REACTIONS (4)
  - ABNORMAL DREAMS [None]
  - DIZZINESS [None]
  - HYPERHIDROSIS [None]
  - NAUSEA [None]
